FAERS Safety Report 7814454-1 (Version None)
Quarter: 2011Q4

REPORT INFORMATION
  Report Type: 
  Country: None (occurrence: None)
  Receive Date: 20111014
  Receipt Date: 20111007
  Transmission Date: 20120403
  Serious: Yes (Hospitalization)
  Sender: FDA-Public Use
  Company Number: DE-B.I. PHARMACEUTICALS,INC./RIDGEFIELD-2011-DE-05656DE

PATIENT
  Age: 73 Year
  Sex: Male
  Weight: 88 kg

DRUGS (4)
  1. BISOPROLOL [Concomitant]
     Indication: HYPERTENSION
  2. RAMIPRIL [Concomitant]
     Indication: HYPERTENSION
  3. PRADAXA [Suspect]
     Indication: ATRIAL FIBRILLATION
     Dosage: 220 MG
     Dates: start: 20111001, end: 20111006
  4. AMLODIPINE [Concomitant]
     Indication: HYPERTENSION

REACTIONS (2)
  - HEADACHE [None]
  - HERPES ZOSTER [None]
